FAERS Safety Report 18380432 (Version 1)
Quarter: 2020Q4

REPORT INFORMATION
  Report Type: Spontaneous
  Country: IN (occurrence: US)
  Receive Date: 20201014
  Receipt Date: 20201014
  Transmission Date: 20210114
  Serious: Yes (Other)
  Sender: FDA-Public Use
  Company Number: US-ELI_LILLY_AND_COMPANY-US202010000794

PATIENT
  Age: 76 Year
  Sex: Female

DRUGS (6)
  1. GEMCITABINE HYDROCHLORIDE. [Suspect]
     Active Substance: GEMCITABINE HYDROCHLORIDE
     Indication: METASTASES TO PELVIS
  2. GEMCITABINE HYDROCHLORIDE. [Suspect]
     Active Substance: GEMCITABINE HYDROCHLORIDE
     Indication: DUCTAL ADENOCARCINOMA OF PANCREAS
     Dosage: UNK, UNKNOWN
     Route: 065
  3. PACLITAXEL. [Suspect]
     Active Substance: PACLITAXEL
     Indication: DUCTAL ADENOCARCINOMA OF PANCREAS
     Dosage: UNK UNK, UNKNOWN
     Route: 065
  4. OSIMERTINIB MESILATE [Suspect]
     Active Substance: OSIMERTINIB
     Indication: DUCTAL ADENOCARCINOMA OF PANCREAS
     Dosage: 80 MG, DAILY
     Route: 065
  5. PACLITAXEL. [Suspect]
     Active Substance: PACLITAXEL
     Indication: METASTASES TO PELVIS
  6. OSIMERTINIB MESILATE [Suspect]
     Active Substance: OSIMERTINIB
     Indication: METASTASES TO PELVIS

REACTIONS (3)
  - Malignant neoplasm progression [Unknown]
  - Myelosuppression [Unknown]
  - Drug intolerance [Unknown]
